FAERS Safety Report 4753495-8 (Version None)
Quarter: 2005Q3

REPORT INFORMATION
  Report Type: 
  Country: None (occurrence: None)
  Receive Date: 20050826
  Receipt Date: 20050816
  Transmission Date: 20060218
  Serious: Yes (Other)
  Sender: FDA-Public Use
  Company Number: US-GLAXOSMITHKLINE-A0570387A

PATIENT
  Age: 25 Year
  Sex: Male

DRUGS (1)
  1. NICODERM CQ [Suspect]
     Route: 062
     Dates: start: 20050816

REACTIONS (2)
  - ANGINA PECTORIS [None]
  - FEELING JITTERY [None]
